FAERS Safety Report 8373696 (Version 2)
Quarter: 2013Q1

REPORT INFORMATION
  Report Type: Report from Study
  Country: US (occurrence: US)
  Receive Date: 20120128
  Receipt Date: 20130129
  Transmission Date: 20140127
  Serious: No
  Sender: FDA-Public Use
  Company Number: US-ABBOTT-11P-163-0848050-00

PATIENT
  Age: 38 Year
  Sex: Male

DRUGS (4)
  1. HUMIRA 40 MG/0.8 ML PEN [Suspect]
     Indication: PSORIASIS
     Dosage: DAY 1
     Dates: start: 20110722, end: 20110722
  2. HUMIRA 40 MG/0.8 ML PEN [Suspect]
     Dosage: DAY 8 AND THEN EVERY OTHER WEEK
  3. HUMIRA 40 MG/0.8 ML PEN [Suspect]
     Dosage: 40 MG WEEKLY
     Dates: start: 201108
  4. HYDROXYZINE [Concomitant]
     Indication: PRURITUS
     Dosage: AT BEDTIME, AS NEEDED

REACTIONS (7)
  - Pruritus [Unknown]
  - Psoriasis [Not Recovered/Not Resolved]
  - Erythema [Unknown]
  - Injection site bruising [Unknown]
  - Rash [Not Recovered/Not Resolved]
  - Rash pruritic [Not Recovered/Not Resolved]
  - Erythema [Not Recovered/Not Resolved]
